FAERS Safety Report 5945553-7 (Version None)
Quarter: 2008Q4

REPORT INFORMATION
  Report Type: 
  Country: None (occurrence: None)
  Receive Date: 20081107
  Receipt Date: 20081028
  Transmission Date: 20090506
  Serious: Yes (Other)
  Sender: FDA-Public Use
  Company Number: GB-B.I. PHARMACEUTICALS,INC./RIDGEFIELD-2008-UK-01697UK

PATIENT
  Age: 39 Year
  Sex: Female

DRUGS (5)
  1. PRAMIPEXOLE DIHYDROCHLORIDE [Suspect]
     Indication: DYSKINESIA
     Dosage: X 3 DAILY
     Route: 048
     Dates: start: 20080101, end: 20080930
  2. PRAMIPEXOLE DIHYDROCHLORIDE [Suspect]
     Indication: RESTLESS LEGS SYNDROME
  3. ACETAMINOPHEN W/ CODEINE [Concomitant]
  4. GABAPENTIN [Concomitant]
     Dosage: 900MG
  5. TRAMADOL HCL [Concomitant]
     Dosage: 4ANZ

REACTIONS (2)
  - COMPULSIVE SHOPPING [None]
  - DEPENDENCE [None]
